FAERS Safety Report 16770662 (Version 14)
Quarter: 2022Q3

REPORT INFORMATION
  Report Type: Report from Study
  Country: CO (occurrence: CO)
  Receive Date: 20190904
  Receipt Date: 20220921
  Transmission Date: 20221027
  Serious: Yes (Hospitalization, Other)
  Sender: FDA-Public Use
  Company Number: PHHY2019CO190528

PATIENT
  Age: 12 Year
  Sex: Female
  Weight: 52 kg

DRUGS (6)
  1. ELTROMBOPAG OLAMINE [Suspect]
     Active Substance: ELTROMBOPAG OLAMINE
     Indication: Immune thrombocytopenia
     Dosage: 50 MG, QD
     Route: 048
     Dates: start: 2018
  2. ELTROMBOPAG OLAMINE [Suspect]
     Active Substance: ELTROMBOPAG OLAMINE
     Dosage: 75 MG, QD
     Route: 048
     Dates: start: 20180211
  3. ELTROMBOPAG OLAMINE [Suspect]
     Active Substance: ELTROMBOPAG OLAMINE
     Dosage: 50 MG, QD
     Route: 048
     Dates: end: 201907
  4. ELTROMBOPAG OLAMINE [Suspect]
     Active Substance: ELTROMBOPAG OLAMINE
     Dosage: 75 MG, QD
     Route: 048
  5. ELTROMBOPAG OLAMINE [Suspect]
     Active Substance: ELTROMBOPAG OLAMINE
     Dosage: 25 MG, QD
     Route: 048
  6. ELTROMBOPAG OLAMINE [Suspect]
     Active Substance: ELTROMBOPAG OLAMINE
     Dosage: UNK UNK, QD
     Route: 048

REACTIONS (35)
  - General physical health deterioration [Unknown]
  - Viral infection [Recovered/Resolved]
  - Petechiae [Unknown]
  - Headache [Unknown]
  - Platelet count decreased [Recovered/Resolved]
  - Immune thrombocytopenia [Unknown]
  - Disease recurrence [Unknown]
  - Depressed mood [Unknown]
  - Optic nerve injury [Unknown]
  - Dehydration [Recovered/Resolved]
  - Peripheral coldness [Unknown]
  - Malaise [Recovered/Resolved]
  - Gastroenteritis [Unknown]
  - Rhinitis [Unknown]
  - Migraine [Unknown]
  - Decreased immune responsiveness [Unknown]
  - Malaise [Unknown]
  - Astigmatism [Unknown]
  - Myopia [Unknown]
  - Skin disorder [Unknown]
  - Dysstasia [Unknown]
  - Anaemia [Unknown]
  - COVID-19 [Unknown]
  - Platelet count decreased [Unknown]
  - Feeling abnormal [Unknown]
  - Influenza like illness [Unknown]
  - Vomiting [Recovered/Resolved]
  - Stress [Unknown]
  - Abdominal pain [Unknown]
  - Pyrexia [Unknown]
  - Fatigue [Unknown]
  - Personality change [Unknown]
  - Aggression [Unknown]
  - Drug ineffective [Unknown]
  - Platelet count increased [Unknown]

NARRATIVE: CASE EVENT DATE: 20190701
